FAERS Safety Report 16791694 (Version 1)
Quarter: 2019Q3

REPORT INFORMATION
  Report Type: Spontaneous
  Country: FR (occurrence: FR)
  Receive Date: 20190910
  Receipt Date: 20190910
  Transmission Date: 20191005
  Serious: Yes (Hospitalization)
  Sender: FDA-Public Use
  Company Number: FR-PFIZER INC-2019383793

PATIENT
  Sex: Female
  Weight: 2.43 kg

DRUGS (6)
  1. BLEOMYCIN [Suspect]
     Active Substance: BLEOMYCIN SULFATE
     Indication: HODGKIN^S DISEASE STAGE II
     Dosage: 16.5 MG, UNK
     Route: 064
  2. VINBLASTINE SULFATE. [Suspect]
     Active Substance: VINBLASTINE SULFATE
     Indication: HODGKIN^S DISEASE STAGE II
     Dosage: 10 MG, UNK
     Route: 064
  3. DEXAMETHASONE. [Suspect]
     Active Substance: DEXAMETHASONE
     Indication: HODGKIN^S DISEASE STAGE II
     Dosage: 4 MG, UNK
     Route: 064
  4. ONDANSETRON HYDROCHLORIDE. [Suspect]
     Active Substance: ONDANSETRON HYDROCHLORIDE
     Indication: PROPHYLAXIS OF NAUSEA AND VOMITING
     Dosage: UNK
     Route: 064
  5. DOXORUBICIN HCL [Suspect]
     Active Substance: DOXORUBICIN HYDROCHLORIDE
     Indication: HODGKIN^S DISEASE STAGE II
     Dosage: 41.5 MG, UNK
     Route: 064
  6. DACARBAZINE. [Suspect]
     Active Substance: DACARBAZINE
     Indication: HODGKIN^S DISEASE STAGE II
     Dosage: 625 MG, UNK
     Route: 064

REACTIONS (4)
  - Febrile bone marrow aplasia [Recovered/Resolved]
  - Exposure during pregnancy [Recovered/Resolved]
  - Septic shock [Recovered/Resolved]
  - Meningitis streptococcal [Recovered/Resolved]

NARRATIVE: CASE EVENT DATE: 20190404
